FAERS Safety Report 20800191 (Version 1)
Quarter: 2022Q2

REPORT INFORMATION
  Report Type: Report from Study
  Country: US (occurrence: US)
  Receive Date: 20220509
  Receipt Date: 20220509
  Transmission Date: 20220721
  Serious: Yes (Hospitalization)
  Sender: FDA-Public Use
  Company Number: US-GILEAD-2022-0579927

PATIENT
  Sex: Female

DRUGS (5)
  1. AZTREONAM LYSINE [Suspect]
     Active Substance: AZTREONAM LYSINE
     Indication: Product used for unknown indication
     Dosage: 1 VIAL, TID
     Route: 055
  2. AMIKACIN SULFATE [Concomitant]
     Active Substance: AMIKACIN SULFATE
  3. CEFTRIAXONE [Concomitant]
     Active Substance: CEFTRIAXONE
  4. BUDESONIDE [Concomitant]
     Active Substance: BUDESONIDE
  5. BROVANA [Concomitant]
     Active Substance: ARFORMOTEROL TARTRATE

REACTIONS (1)
  - Gallbladder disorder [Unknown]
